FAERS Safety Report 17913181 (Version 5)
Quarter: 2024Q2

REPORT INFORMATION
  Report Type: Spontaneous
  Country: US (occurrence: US)
  Receive Date: 20200618
  Receipt Date: 20240603
  Transmission Date: 20240716
  Serious: No
  Sender: FDA-Public Use
  Company Number: US-PFIZER INC-2020235560

PATIENT
  Age: 78 Year
  Sex: Female

DRUGS (1)
  1. PREMARIN [Suspect]
     Active Substance: ESTROGENS, CONJUGATED
     Dosage: UNK

REACTIONS (8)
  - Hypoacusis [Unknown]
  - Therapeutic response unexpected [Unknown]
  - Sexually active [Unknown]
  - Mental disorder [Unknown]
  - Arthritis [Unknown]
  - Ulcer haemorrhage [Unknown]
  - Back disorder [Unknown]
  - Pain [Unknown]
